FAERS Safety Report 5893284-4 (Version None)
Quarter: 2008Q3

REPORT INFORMATION
  Report Type: 
  Country: None (occurrence: None)
  Receive Date: 20080919
  Receipt Date: 20080911
  Transmission Date: 20090109
  Serious: Yes (Hospitalization)
  Sender: FDA-Public Use
  Company Number: 6045661

PATIENT
  Age: 79 Year
  Sex: Male

DRUGS (11)
  1. BISOPROLOL FUMARATE [Suspect]
     Indication: ISCHAEMIC CARDIOMYOPATHY
     Dosage: 1.25 MG (1.25 MG, 1 IN 1 D), ORAL; 3.75 MG (3.75 MG, 1 IN 1 D), ORAL
     Route: 048
  2. CORDARONE [Suspect]
     Indication: VENTRICULAR TACHYCARDIA
     Dosage: 100 MG (200 MG, 1 IN 2 D); ORAL
     Route: 048
     Dates: end: 20080716
  3. PRAVASTATIN SODIUM [Concomitant]
  4. SINTROM (TABLET) (ACENOCOUMAROL) [Concomitant]
  5. FUROSEMIDE [Concomitant]
  6. ISOSORBIDE DINITRATE [Concomitant]
  7. TRIATEC (TABLET) (RAMIPRIL) [Concomitant]
  8. PERMIXON (CAPSULE) (SERENOA REPENS) [Concomitant]
  9. KARDEGIC (POWDER FOR ORAL SOLUTION) (ACETYLSALICYLATE LYSINE) [Concomitant]
  10. KAYEXALATE [Concomitant]
  11. DAFALGAN (500 MG, CAPSULE) (PARACETAMOL) [Concomitant]

REACTIONS (14)
  - ATRIAL FIBRILLATION [None]
  - BLOOD PRESSURE INCREASED [None]
  - BRADYARRHYTHMIA [None]
  - BUNDLE BRANCH BLOCK LEFT [None]
  - BUNDLE BRANCH BLOCK RIGHT [None]
  - CATHETER RELATED COMPLICATION [None]
  - FALL [None]
  - HEAD INJURY [None]
  - ISCHAEMIC CARDIOMYOPATHY [None]
  - LOSS OF CONSCIOUSNESS [None]
  - LYMPHANGITIS [None]
  - STAPHYLOCOCCAL INFECTION [None]
  - SYNCOPE [None]
  - VENTRICULAR TACHYCARDIA [None]
